FAERS Safety Report 9254498 (Version 1)
Quarter: 2013Q2

REPORT INFORMATION
  Report Type: Spontaneous
  Country: US (occurrence: None)
  Receive Date: 20130422
  Receipt Date: 20130422
  Transmission Date: 20140414
  Serious: Yes (Disabling, Other)
  Sender: FDA-Public Use
  Company Number: None

PATIENT
  Age: 54 Year
  Sex: Female
  Weight: 56.7 kg

DRUGS (1)
  1. METROPROLOL [Suspect]
     Indication: HYPERTENSION
     Dates: start: 20120225, end: 20120305

REACTIONS (3)
  - Tinnitus [None]
  - Deafness [None]
  - Toxicity to various agents [None]
